FAERS Safety Report 6826643-3 (Version None)
Quarter: 2010Q3

REPORT INFORMATION
  Report Type: 
  Country: None (occurrence: None)
  Receive Date: 20100709
  Receipt Date: 20100630
  Transmission Date: 20110219
  Serious: Yes (Death, Hospitalization)
  Sender: FDA-Public Use
  Company Number: US-PFIZER INC-2010066130

PATIENT
  Sex: Female
  Weight: 166 kg

DRUGS (14)
  1. SUTENT [Suspect]
     Indication: GASTROINTESTINAL STROMAL TUMOUR
     Dosage: 50 MG, 1X/DAY
     Route: 048
     Dates: start: 20100406, end: 20100430
  2. LOPRESSOR [Concomitant]
  3. WARFARIN [Concomitant]
  4. ALPRAZOLAM [Concomitant]
  5. KLOR-CON [Concomitant]
  6. DEMADEX [Concomitant]
  7. TRAMADOL [Concomitant]
  8. PACERONE [Concomitant]
  9. SYNTHROID [Concomitant]
  10. MEVACOR [Concomitant]
  11. OMEPRAZOLE [Concomitant]
  12. GLUCOTROL [Concomitant]
  13. VICODIN [Concomitant]
  14. ZOFRAN [Concomitant]

REACTIONS (3)
  - DISEASE PROGRESSION [None]
  - GASTROINTESTINAL STROMAL TUMOUR [None]
  - TUMOUR HAEMORRHAGE [None]
